FAERS Safety Report 22746102 (Version 7)
Quarter: 2024Q3

REPORT INFORMATION
  Report Type: Spontaneous
  Country: GB (occurrence: GB)
  Receive Date: 20230725
  Receipt Date: 20240816
  Transmission Date: 20241016
  Serious: Yes (Other)
  Sender: AUROBINDO
  Company Number: GB-AUROBINDO-AUR-APL-2023-012002

PATIENT
  Age: 42 Year
  Sex: Male
  Weight: 90 kg

DRUGS (28)
  1. AMISULPRIDE [Suspect]
     Active Substance: AMISULPRIDE
     Indication: Schizophrenia
     Dosage: 400 MILLIGRAM, ONCE A DAY (Y AT NIGHT)
     Route: 048
     Dates: start: 202202, end: 202304
  2. AMISULPRIDE [Suspect]
     Active Substance: AMISULPRIDE
     Dosage: 200 MILLIGRAM, TWO TIMES A DAY
     Route: 048
  3. ARIPIPRAZOLE [Suspect]
     Active Substance: ARIPIPRAZOLE
     Indication: Product used for unknown indication
     Dosage: UNK
     Route: 030
  4. CIPROFLOXACIN [Suspect]
     Active Substance: CIPROFLOXACIN
     Indication: Infection
     Dosage: 500 MILLIGRAM
     Route: 048
  5. CIPROFLOXACIN [Suspect]
     Active Substance: CIPROFLOXACIN
     Indication: Infection
     Dosage: 500 MG
     Route: 048
  6. LEVOFLOXACIN [Suspect]
     Active Substance: LEVOFLOXACIN
     Indication: Infection
     Dosage: UNK
     Route: 048
  7. TESTOSTERONE DECANOATE\TESTOSTERONE ISOCAPROATE\TESTOSTERONE PHENYLPRO [Suspect]
     Active Substance: TESTOSTERONE DECANOATE\TESTOSTERONE ISOCAPROATE\TESTOSTERONE PHENYLPROPIONATE\TESTOSTERONE PROPIONAT
     Indication: Product used for unknown indication
     Dosage: UNK (EVERY 2 TO 3 WEEKS) N (PAST 7 TO 8 YEARS)
     Route: 030
  8. CETIRIZINE HYDROCHLORIDE [Concomitant]
     Active Substance: CETIRIZINE HYDROCHLORIDE
     Indication: Pruritus
     Dosage: UNK
     Route: 048
     Dates: start: 202304
  9. DIAZEPAM [Concomitant]
     Active Substance: DIAZEPAM
     Indication: Stress
     Dosage: UNK
     Route: 048
     Dates: start: 20230505
  10. DIAZEPAM [Concomitant]
     Active Substance: DIAZEPAM
     Indication: Anxiety
  11. DIPHENHYDRAMINE HYDROCHLORIDE [Concomitant]
     Active Substance: DIPHENHYDRAMINE HYDROCHLORIDE
     Indication: Pruritus
     Dosage: UNK
     Route: 065
  12. DOXAZOSIN [Concomitant]
     Active Substance: DOXAZOSIN MESYLATE
     Indication: Hypertension
     Dosage: 1 DF, BID
     Route: 048
     Dates: start: 20230623
  13. FEXOFENADINE [Concomitant]
     Active Substance: FEXOFENADINE HYDROCHLORIDE
     Indication: Pruritus
     Dosage: UNK
     Route: 048
     Dates: start: 20230413
  14. LOSARTAN [Concomitant]
     Active Substance: LOSARTAN\LOSARTAN POTASSIUM
     Indication: Hypertension
     Dosage: UNK, ONCE A DAY
     Route: 048
     Dates: start: 20230404, end: 20230413
  15. LOSARTAN [Concomitant]
     Active Substance: LOSARTAN\LOSARTAN POTASSIUM
     Dosage: UNK, ONCE A DAY
     Route: 048
     Dates: start: 20230413
  16. LOSARTAN [Concomitant]
     Active Substance: LOSARTAN\LOSARTAN POTASSIUM
     Dosage: UNK, ONCE A DAY (LAST WEEK FROM THE TIME OF THE REPORT) (CONTINUING)
     Route: 048
     Dates: start: 20230424
  17. MELATONIN [Concomitant]
     Active Substance: MELATONIN
     Indication: Insomnia
     Dosage: 4 MILLIGRAM, ONCE A DAY
     Route: 048
  18. MELATONIN [Concomitant]
     Active Substance: MELATONIN
     Dosage: 10 MG, BID
     Route: 048
  19. NEFOPAM [Concomitant]
     Active Substance: NEFOPAM
     Indication: Pain
     Dosage: 1 DOSAGE FORM, 3 TIMES A DAY (1 IN THE  MORNING 2 AT  NIGHT)
     Route: 048
  20. OMEPRAZOLE [Concomitant]
     Active Substance: OMEPRAZOLE
     Indication: Infection
     Dosage: UNK
     Route: 048
  21. OMEPRAZOLE [Concomitant]
     Active Substance: OMEPRAZOLE
     Indication: Polyuria
  22. ACETAMINOPHEN [Concomitant]
     Active Substance: ACETAMINOPHEN
     Indication: Headache
     Dosage: 1 DOSAGE FORM, 3 TIMES A DAY (2 IN THE  MORNING AND 1  AT NIGHT)
     Route: 048
  23. RIMOXALLIN [Concomitant]
     Indication: Dry eye
     Dosage: UNK
     Route: 065
  24. SPIRONOLACTONE [Concomitant]
     Active Substance: SPIRONOLACTONE
     Indication: Hypertension
     Dosage: UNK
     Route: 048
     Dates: start: 20230626
  25. CARBOMER [Concomitant]
     Active Substance: CARBOMER
     Indication: Dry eye
     Dosage: UNK
     Route: 065
  26. METOPROLOL [Concomitant]
     Active Substance: METOPROLOL
     Indication: Product used for unknown indication
     Dosage: 10 MILLIGRAM, TWO TIMES A DAY
     Route: 048
  27. LOSARTAN [Concomitant]
     Active Substance: LOSARTAN\LOSARTAN POTASSIUM
     Indication: Hypertension
     Dosage: UNK, ONCE A DAY
     Route: 048
     Dates: start: 20230413
  28. LOSARTAN [Concomitant]
     Active Substance: LOSARTAN\LOSARTAN POTASSIUM
     Indication: Hypertension
     Dosage: UNK, ONCE A DAY
     Route: 048
     Dates: start: 20230424

REACTIONS (35)
  - Erectile dysfunction [Not Recovered/Not Resolved]
  - Hypertension [Recovering/Resolving]
  - Abdominal distension [Not Recovered/Not Resolved]
  - Alopecia [Unknown]
  - Amnesia [Recovered/Resolved]
  - Anxiety [Unknown]
  - Blood pressure decreased [Recovered/Resolved]
  - Confusional state [Recovered/Resolved]
  - Dizziness [Recovered/Resolved]
  - Dry eye [Unknown]
  - Dysarthria [Recovered/Resolved]
  - Dyspepsia [Not Recovered/Not Resolved]
  - Ear pain [Unknown]
  - Ejaculation disorder [Not Recovered/Not Resolved]
  - Feeling hot [Not Recovered/Not Resolved]
  - Hypoacusis [Not Recovered/Not Resolved]
  - Insomnia [Not Recovered/Not Resolved]
  - Memory impairment [Not Recovered/Not Resolved]
  - Oropharyngeal pain [Unknown]
  - Penile size reduced [Not Recovered/Not Resolved]
  - Polyuria [Unknown]
  - Pruritus [Unknown]
  - Rash [Unknown]
  - Sensory loss [Not Recovered/Not Resolved]
  - Sleep deficit [Not Recovered/Not Resolved]
  - Sexual dysfunction [Not Recovered/Not Resolved]
  - Stress [Unknown]
  - Testicular atrophy [Recovering/Resolving]
  - Tension headache [Not Recovered/Not Resolved]
  - Tendonitis [Recovered/Resolved]
  - Testicular pain [Not Recovered/Not Resolved]
  - Tinnitus [Unknown]
  - Thermohypoaesthesia [Not Recovered/Not Resolved]
  - Weight increased [Not Recovered/Not Resolved]
  - Drug interaction [Recovered/Resolved]

NARRATIVE: CASE EVENT DATE: 20210101
